FAERS Safety Report 15984248 (Version 1)
Quarter: 2019Q1

REPORT INFORMATION
  Report Type: Spontaneous
  Country: US (occurrence: US)
  Receive Date: 20190219
  Receipt Date: 20190219
  Transmission Date: 20190418
  Serious: Yes (Other)
  Sender: FDA-Public Use
  Company Number: None

PATIENT
  Age: 64 Year
  Sex: Female
  Weight: 65.7 kg

DRUGS (6)
  1. SUTENT [Suspect]
     Active Substance: SUNITINIB MALATE
     Indication: RENAL CANCER
     Route: 048
     Dates: start: 20190114, end: 20190218
  2. SIMVASTATIN. [Concomitant]
     Active Substance: SIMVASTATIN
  3. HYDROCHLOROTHIAZIDE 25MG [Concomitant]
     Active Substance: HYDROCHLOROTHIAZIDE
  4. CYANOCOBALAMIN. [Concomitant]
     Active Substance: CYANOCOBALAMIN
  5. LEXAPRO [Concomitant]
     Active Substance: ESCITALOPRAM OXALATE
  6. ASPIRIN. [Concomitant]
     Active Substance: ASPIRIN

REACTIONS (1)
  - Hypertension [None]

NARRATIVE: CASE EVENT DATE: 20190218
